FAERS Safety Report 7399280-2 (Version None)
Quarter: 2011Q1

REPORT INFORMATION
  Report Type: 
  Country: None (occurrence: None)
  Receive Date: 20110328
  Receipt Date: 20110315
  Transmission Date: 20110831
  Serious: Yes (Other)
  Sender: FDA-Public Use
  Company Number: 20110117

PATIENT
  Age: 34 Year
  Sex: Female

DRUGS (3)
  1. YASMIN [Concomitant]
  2. ORAL IRON [Concomitant]
  3. VENOFER [Suspect]
     Indication: IRON DEFICIENCY
     Dosage: 300 MG IN 250 ML NACL, 20 MG/ML, INTRAVENOUS DRIP
     Route: 041
     Dates: start: 20110125, end: 20110125

REACTIONS (5)
  - MUSCLE SPASMS [None]
  - PRODUCT QUALITY ISSUE [None]
  - ROAD TRAFFIC ACCIDENT [None]
  - SYNCOPE [None]
  - AMNESIA [None]
